FAERS Safety Report 8855894 (Version 2)
Quarter: 2012Q4

REPORT INFORMATION
  Report Type: 
  Country: US (occurrence: US)
  Receive Date: 20121023
  Receipt Date: 20121204
  Transmission Date: 20130627
  Serious: No
  Sender: FDA-Public Use
  Company Number: US-AMGEN-USASP2012058376

PATIENT
  Age: 12 Year
  Sex: Female
  Weight: 90.7 kg

DRUGS (4)
  1. ENBREL [Suspect]
     Indication: JUVENILE ARTHRITIS
     Dosage: 25 mg, 2 times/wk
     Route: 058
     Dates: start: 201108
  2. ENBREL [Suspect]
     Indication: PSORIATIC ARTHROPATHY
  3. METHOTREXATE [Concomitant]
     Indication: JUVENILE ARTHRITIS
     Dosage: 15 mg, qwk
     Route: 048
     Dates: start: 201108
  4. FOLIC ACID [Concomitant]
     Indication: JUVENILE ARTHRITIS
     Dosage: 1 mg, daily

REACTIONS (1)
  - Injection site bruising [Not Recovered/Not Resolved]
